FAERS Safety Report 5089291-4 (Version None)
Quarter: 2006Q3

REPORT INFORMATION
  Report Type: 
  Country: None (occurrence: None)
  Receive Date: 20060727
  Receipt Date: 20060603
  Transmission Date: 20061208
  Serious: Yes (Other)
  Sender: FDA-Public Use
  Company Number: 2006071955

PATIENT
  Sex: Female

DRUGS (2)
  1. LYRICA [Suspect]
     Indication: POST HERPETIC NEURALGIA
     Dosage: ORAL
     Route: 048
     Dates: start: 20060501
  2. NEURONTIN [Suspect]
     Indication: POST HERPETIC NEURALGIA
     Dosage: ORAL
     Route: 048
     Dates: end: 20060501

REACTIONS (2)
  - DRUG INEFFECTIVE [None]
  - JOINT DISLOCATION [None]
